FAERS Safety Report 14468370 (Version 3)
Quarter: 2024Q1

REPORT INFORMATION
  Report Type: Spontaneous
  Country: US (occurrence: US)
  Receive Date: 20180131
  Receipt Date: 20240320
  Transmission Date: 20240410
  Serious: No
  Sender: FDA-Public Use
  Company Number: US-ACORDA-ACO_138814_2017

PATIENT
  Age: 59 Year
  Sex: Male

DRUGS (10)
  1. AMPYRA [Suspect]
     Active Substance: DALFAMPRIDINE
     Indication: Gait disturbance
     Dosage: 10 MG, BID
     Route: 048
     Dates: start: 2014
  2. AMPYRA [Suspect]
     Active Substance: DALFAMPRIDINE
     Indication: Balance disorder
  3. DALFAMPRIDINE [Suspect]
     Active Substance: DALFAMPRIDINE
     Indication: Product used for unknown indication
     Dosage: UNK
     Route: 065
  4. AVONEX [Suspect]
     Active Substance: INTERFERON BETA-1A
     Indication: Multiple sclerosis
     Dosage: 30 MCG, WEEKLY
     Route: 030
     Dates: start: 200803, end: 2012
  5. AVONEX [Suspect]
     Active Substance: INTERFERON BETA-1A
     Dosage: 30 MCG, WEEKLY
     Route: 030
     Dates: start: 2012
  6. AVONEX [Suspect]
     Active Substance: INTERFERON BETA-1A
     Dosage: 30 MCG, WEEKLY
     Route: 030
     Dates: start: 20080423, end: 20130108
  7. AVONEX [Suspect]
     Active Substance: INTERFERON BETA-1A
     Dosage: 30 MCG, WEEKLY
     Route: 030
     Dates: start: 20130109
  8. KLONOPIN [Concomitant]
     Active Substance: CLONAZEPAM
     Indication: Anxiety
     Dosage: 0.5 MG, BID
     Route: 048
     Dates: start: 2014
  9. COMPAZINE [Concomitant]
     Active Substance: PROCHLORPERAZINE MALEATE
     Indication: Anxiety
     Dosage: 5 MG, BID
     Route: 048
     Dates: start: 2014
  10. ALEVE [Concomitant]
     Active Substance: NAPROXEN SODIUM
     Indication: Injection site pain
     Dosage: UNK
     Route: 065

REACTIONS (26)
  - Condition aggravated [Unknown]
  - Central nervous system lesion [Not Recovered/Not Resolved]
  - Stress [Recovered/Resolved]
  - Nervousness [Recovered/Resolved]
  - Therapeutic response unexpected [Unknown]
  - Aphasia [Not Recovered/Not Resolved]
  - Neuropathy peripheral [Not Recovered/Not Resolved]
  - Depression [Not Recovered/Not Resolved]
  - Muscle spasms [Not Recovered/Not Resolved]
  - Off label use [Unknown]
  - Gait disturbance [None]
  - Hypoaesthesia [None]
  - Mobility decreased [None]
  - Balance disorder [None]
  - Memory impairment [None]
  - Band sensation [None]
  - Vertigo [None]
  - Cognitive disorder [None]
  - Neuropathy peripheral [None]
  - Temperature intolerance [None]
  - Photopsia [None]
  - Influenza like illness [Unknown]
  - Anxiety [None]
  - Paraesthesia [None]
  - Chest discomfort [None]
  - Multiple sclerosis [None]

NARRATIVE: CASE EVENT DATE: 20160201
